FAERS Safety Report 18790162 (Version 2)
Quarter: 2022Q1

REPORT INFORMATION
  Report Type: Other
  Country: US (occurrence: US)
  Receive Date: 20210125
  Receipt Date: 20220123
  Transmission Date: 20220423
  Serious: No
  Sender: FDA-Public Use
  Company Number: US-ACORDA-ACO_166482_2020

PATIENT
  Age: 56 Year
  Sex: Male

DRUGS (4)
  1. AMPYRA [Suspect]
     Active Substance: DALFAMPRIDINE
     Indication: Multiple sclerosis
     Dosage: 10 MILLIGRAM, BID (Q12H)
     Route: 048
     Dates: start: 20200807
  2. GABAPENTIN [Concomitant]
     Active Substance: GABAPENTIN
     Indication: Product used for unknown indication
     Dosage: UNK
     Route: 065
  3. COVID-19 VACCINE [Concomitant]
     Indication: Product used for unknown indication
     Dosage: UNK
     Route: 065
  4. OTHER THERAPEUTIC PRODUCTS [cholesterol medication] [Concomitant]
     Indication: Product used for unknown indication
     Dosage: UNK
     Route: 065

REACTIONS (11)
  - Mobility decreased [Unknown]
  - Fall [Unknown]
  - Incontinence [Not Recovered/Not Resolved]
  - Tremor [Unknown]
  - Hypokinesia [Unknown]
  - Musculoskeletal stiffness [Unknown]
  - Pain [Unknown]
  - Muscle spasms [Unknown]
  - Product dose omission issue [Unknown]
  - Product dose omission issue [Unknown]
  - Dizziness [Not Recovered/Not Resolved]

NARRATIVE: CASE EVENT DATE: 20201201
